FAERS Safety Report 13425414 (Version 1)
Quarter: 2017Q2

REPORT INFORMATION
  Report Type: Report from Study
  Country: US (occurrence: US)
  Receive Date: 20170411
  Receipt Date: 20170411
  Transmission Date: 20170830
  Serious: Yes (Death)
  Sender: FDA-Public Use
  Company Number: US-ROCHE-1916061

PATIENT
  Age: 69 Year
  Sex: Male
  Weight: 113.5 kg

DRUGS (18)
  1. CODEINE [Concomitant]
     Active Substance: CODEINE
     Route: 048
  2. ANDROGEL [Concomitant]
     Active Substance: TESTOSTERONE
  3. TRAZODONE [Concomitant]
     Active Substance: TRAZODONE HYDROCHLORIDE
     Dosage: AT BEDTIME
     Route: 048
  4. TESSALON [Concomitant]
     Active Substance: BENZONATATE
     Route: 048
  5. PREDNISONE. [Concomitant]
     Active Substance: PREDNISONE
     Route: 048
  6. ULTRAM [Concomitant]
     Active Substance: TRAMADOL HYDROCHLORIDE
     Route: 048
  7. TUDORZA PRESSAIR [Concomitant]
     Active Substance: ACLIDINIUM BROMIDE
     Route: 065
  8. ZOCOR [Concomitant]
     Active Substance: SIMVASTATIN
     Dosage: AT BEDTIME
     Route: 048
  9. LOTREL (UNITED STATES) [Concomitant]
     Dosage: 10-40 MG
     Route: 048
  10. TENORMIN [Concomitant]
     Active Substance: ATENOLOL
     Route: 048
  11. NEXIUM [Concomitant]
     Active Substance: ESOMEPRAZOLE MAGNESIUM
     Route: 048
  12. LIDODERM [Concomitant]
     Active Substance: LIDOCAINE
     Route: 065
  13. OXYCONTIN [Concomitant]
     Active Substance: OXYCODONE HYDROCHLORIDE
     Route: 048
  14. PERCOCET [Concomitant]
     Active Substance: ACETAMINOPHEN\OXYCODONE HYDROCHLORIDE
     Dosage: 10-325 MG
     Route: 048
  15. ESBRIET [Suspect]
     Active Substance: PIRFENIDONE
     Indication: IDIOPATHIC PULMONARY FIBROSIS
     Dosage: ONGOING NO
     Route: 048
  16. PROAIR HFA [Concomitant]
     Active Substance: ALBUTEROL SULFATE
     Route: 065
  17. PREDNISONE. [Concomitant]
     Active Substance: PREDNISONE
     Route: 048
  18. NEURONTIN [Concomitant]
     Active Substance: GABAPENTIN
     Route: 048

REACTIONS (1)
  - Death [Fatal]

NARRATIVE: CASE EVENT DATE: 20170320
